FAERS Safety Report 10182795 (Version 2)
Quarter: 2014Q2

REPORT INFORMATION
  Report Type: Spontaneous
  Country: US (occurrence: US)
  Receive Date: 20140520
  Receipt Date: 20140520
  Transmission Date: 20141212
  Serious: Yes (Hospitalization)
  Sender: FDA-Public Use
  Company Number: US-FRI-S01-USA-00876-01

PATIENT
  Age: 57 Year
  Sex: Female

DRUGS (5)
  1. ARMOUR THYROID [Suspect]
     Indication: HYPOTHYROIDISM
     Dosage: 180 MG
     Route: 048
     Dates: end: 200104
  2. ARMOUR THYROID [Suspect]
     Dosage: 240 MG
     Route: 048
     Dates: start: 200104, end: 2001
  3. ARMOUR THYROID [Suspect]
     Indication: HYPOTHYROIDISM
     Dosage: 240 MG
     Route: 048
     Dates: start: 2001, end: 201202
  4. STEROIDS [Suspect]
     Indication: ADRENAL DISORDER
     Dates: end: 20120113
  5. TRIEST [Concomitant]
     Indication: MENOPAUSE

REACTIONS (6)
  - Mental disorder [Recovered/Resolved]
  - Alopecia [Unknown]
  - Fatigue [Recovered/Resolved]
  - Drug ineffective [Recovered/Resolved]
  - Incorrect dose administered [None]
  - Treatment noncompliance [None]
